FAERS Safety Report 5485604-X (Version None)
Quarter: 2007Q4

REPORT INFORMATION
  Report Type: 
  Country: None (occurrence: None)
  Receive Date: 20071011
  Receipt Date: 20071011
  Transmission Date: 20080405
  Serious: No
  Sender: FDA-Public Use
  Company Number: None

PATIENT
  Age: 15 Year
  Sex: Female
  Weight: 54.4316 kg

DRUGS (1)
  1. AMOXICILLIN + CLAVULANATE POTASSIUM [Suspect]
     Dosage: 875/125 2 DAY PO
     Route: 048
     Dates: start: 20071001, end: 20071010

REACTIONS (3)
  - FATIGUE [None]
  - PHARYNGOLARYNGEAL PAIN [None]
  - RASH [None]
